FAERS Safety Report 17032532 (Version 1)
Quarter: 2019Q4

REPORT INFORMATION
  Report Type: Spontaneous
  Country: US (occurrence: US)
  Receive Date: 20191014
  Receipt Date: 20191014
  Transmission Date: 20200122
  Serious: No
  Sender: FDA-Public Use
  Company Number: None

PATIENT
  Age: 72 Year
  Sex: Male

DRUGS (1)
  1. SUTENT [Suspect]
     Active Substance: SUNITINIB MALATE
     Indication: RENAL CANCER
     Route: 048
     Dates: start: 20191001, end: 20191004

REACTIONS (4)
  - Blood pressure increased [None]
  - Cardiac disorder [None]
  - Therapy change [None]
  - Headache [None]

NARRATIVE: CASE EVENT DATE: 20191004
